FAERS Safety Report 11855044 (Version 1)
Quarter: 2015Q4

REPORT INFORMATION
  Report Type: Spontaneous
  Country: IT (occurrence: IT)
  Receive Date: 20151221
  Receipt Date: 20151221
  Transmission Date: 20160305
  Serious: Yes (Hospitalization)
  Sender: FDA-Public Use
  Company Number: IT-BAYER-2015-486510

PATIENT
  Age: 74 Year
  Sex: Female

DRUGS (6)
  1. LANSOPRAZOLE. [Concomitant]
     Active Substance: LANSOPRAZOLE
     Dosage: UNK
     Route: 048
  2. TENORMIN [Concomitant]
     Active Substance: ATENOLOL
     Dosage: UNK
     Route: 048
  3. CARDIOASPIRIN [Concomitant]
     Active Substance: ASPIRIN
     Dosage: UNK
     Route: 048
  4. METFORMIN [Concomitant]
     Active Substance: METFORMIN HYDROCHLORIDE
     Dosage: UNK
     Route: 048
  5. EUTIROX [Concomitant]
     Active Substance: LEVOTHYROXINE SODIUM
     Dosage: UNK
     Route: 048
  6. CIPROXIN 500 MG FILM-COATED TABLETS [Suspect]
     Active Substance: CIPROFLOXACIN
     Indication: DIVERTICULUM INTESTINAL
     Dosage: 1000 MG, QD
     Route: 048
     Dates: start: 20151109, end: 20151110

REACTIONS (3)
  - Abdominal pain upper [Recovering/Resolving]
  - Blood pressure increased [Recovering/Resolving]
  - Dysentery [Recovering/Resolving]

NARRATIVE: CASE EVENT DATE: 20151109
